FAERS Safety Report 12838207 (Version 1)
Quarter: 2016Q4

REPORT INFORMATION
  Report Type: Spontaneous
  Country: GB (occurrence: GB)
  Receive Date: 20161012
  Receipt Date: 20161012
  Transmission Date: 20170207
  Serious: Yes (Other)
  Sender: FDA-Public Use
  Company Number: PHFR2016GB008051

PATIENT
  Age: 73 Year
  Sex: Male
  Weight: 92 kg

DRUGS (3)
  1. RIVASTIGMINE. [Suspect]
     Active Substance: RIVASTIGMINE
     Indication: PRODUCT USED FOR UNKNOWN INDICATION
     Dosage: UNK
     Route: 065
     Dates: start: 20160617
  2. TADALAFIL [Concomitant]
     Active Substance: TADALAFIL
     Indication: PRODUCT USED FOR UNKNOWN INDICATION
     Dosage: 2 DF, QD (TWO TO BE TAKEN DAILY AS REQUIRED)
     Route: 065
     Dates: start: 20100608
  3. DICLOFENAC SODIUM. [Concomitant]
     Active Substance: DICLOFENAC SODIUM
     Indication: PRODUCT USED FOR UNKNOWN INDICATION
     Dosage: 1 DF, BID (APPLY TWICE DAILY FOR 90 DAYS)
     Route: 065
     Dates: start: 20160815

REACTIONS (2)
  - Migraine with aura [Unknown]
  - Scintillating scotoma [Not Recovered/Not Resolved]

NARRATIVE: CASE EVENT DATE: 20160810
